FAERS Safety Report 23170384 (Version 1)
Quarter: 2023Q4

REPORT INFORMATION
  Report Type: Spontaneous
  Country: GB (occurrence: GB)
  Receive Date: 20231110
  Receipt Date: 20231110
  Transmission Date: 20240110
  Serious: Yes (Other)
  Sender: FDA-Public Use
  Company Number: None

PATIENT
  Age: 78 Year
  Sex: Male
  Weight: 80 kg

DRUGS (11)
  1. MIRTAZAPINE [Suspect]
     Active Substance: MIRTAZAPINE
     Dosage: 15 MILLIGRAM
     Route: 048
     Dates: start: 20230905
  2. SODIUM ALGINATE [Concomitant]
     Active Substance: SODIUM ALGINATE
     Dosage: 10ML-20ML 4 TIMES/DAY
     Dates: start: 20231002, end: 20231030
  3. RIVASTIGMINE [Concomitant]
     Active Substance: RIVASTIGMINE
     Dosage: APPLY ONE PATCH EVERY TWENTY FOUR HOURS
     Dates: start: 20230703
  4. ATORVASTATIN [Concomitant]
     Active Substance: ATORVASTATIN
     Indication: Blood cholesterol increased
     Dosage: TAKE ONE TABLET ONCE A DAY TO HELP LOWER CHOLES...
     Dates: start: 20230314
  5. CLONAZEPAM [Concomitant]
     Active Substance: CLONAZEPAM
     Dosage: AT NIGHT, CAN BE INCREASED EVERY 3DAYS TO A...
     Dates: start: 20230314
  6. CLOPIDOGREL [Concomitant]
     Active Substance: CLOPIDOGREL BISULFATE
     Dates: start: 20230314
  7. CYCLIZINE [Concomitant]
     Active Substance: CYCLIZINE
     Dosage: TAKE ONE 30 MINUTES BEFORE MEALS TO HELP WITH N...
     Dates: start: 20231002, end: 20231007
  8. DOCUSATE SODIUM [Concomitant]
     Active Substance: DOCUSATE SODIUM
     Indication: Constipation
     Dosage: TAKE 1-2  TABS TWICE DAILY
     Dates: start: 20230314
  9. LANSOPRAZOLE [Concomitant]
     Active Substance: LANSOPRAZOLE
     Dosage: TAKE ONE DAILY IN ADDITION TO 15MG IN BLISTER PACK
     Dates: start: 20230314
  10. LATANOPROST [Concomitant]
     Active Substance: LATANOPROST
     Dosage: TO EACH EYE
     Dates: start: 20230817
  11. POLYETHYLENE GLYCOL 3350\POTASSIUM CHLORIDE\SODIUM BICARBONATE\SODIUM [Concomitant]
     Active Substance: POLYETHYLENE GLYCOL 3350\POTASSIUM CHLORIDE\SODIUM BICARBONATE\SODIUM CHLORIDE
     Indication: Constipation
     Dosage: TWO IN AM AND TWO IN PM IF NEEDED
     Dates: start: 20230314

REACTIONS (2)
  - Confusional state [Recovered/Resolved]
  - Disorientation [Unknown]
